FAERS Safety Report 5197560-2 (Version None)
Quarter: 2007Q1

REPORT INFORMATION
  Report Type: 
  Country: None (occurrence: None)
  Receive Date: 20070103
  Receipt Date: 20061219
  Transmission Date: 20070707
  Serious: Yes (Hospitalization)
  Sender: FDA-Public Use
  Company Number: JP-BRISTOL-MYERS SQUIBB COMPANY-13627740

PATIENT
  Age: 38 Year
  Sex: Male

DRUGS (5)
  1. STOCRIN CAPS [Suspect]
     Indication: HIV INFECTION
     Route: 048
     Dates: start: 20051005
  2. STOCRIN CAPS [Suspect]
     Indication: HEPATITIS B VIRUS
     Route: 048
     Dates: start: 20051005
  3. VIREAD [Concomitant]
     Dates: start: 20051005
  4. EMTRICITABINE [Concomitant]
     Dates: start: 20051005
  5. INTERFERON [Concomitant]

REACTIONS (1)
  - NEPHROTIC SYNDROME [None]
